FAERS Safety Report 13949379 (Version 1)
Quarter: 2017Q3

REPORT INFORMATION
  Report Type: Spontaneous
  Country: US (occurrence: US)
  Receive Date: 20170908
  Receipt Date: 20170908
  Transmission Date: 20171128
  Serious: No
  Sender: FDA-Public Use
  Company Number: US-JAZZ-2017-US-009298

PATIENT
  Age: 37 Year
  Sex: Female

DRUGS (4)
  1. ADDERALL [Suspect]
     Active Substance: AMPHETAMINE ASPARTATE\AMPHETAMINE SULFATE\DEXTROAMPHETAMINE SACCHARATE\DEXTROAMPHETAMINE SULFATE
     Indication: PRODUCT USED FOR UNKNOWN INDICATION
  2. XYREM [Suspect]
     Active Substance: SODIUM OXYBATE
     Dosage: 2.25 G, QD
     Route: 048
     Dates: start: 20170718
  3. XYREM [Suspect]
     Active Substance: SODIUM OXYBATE
     Indication: NARCOLEPSY
     Dosage: 2.25G, BID
     Route: 048
     Dates: start: 20170714, end: 20170716
  4. XYREM [Suspect]
     Active Substance: SODIUM OXYBATE
     Indication: CATAPLEXY
     Dosage: 1.125 G, BID
     Route: 048
     Dates: start: 20170717, end: 20170717

REACTIONS (9)
  - Sluggishness [Unknown]
  - Nausea [Unknown]
  - Hypokinesia [Unknown]
  - Pain [Recovered/Resolved]
  - Inappropriate schedule of drug administration [Unknown]
  - Skin burning sensation [Not Recovered/Not Resolved]
  - Paraesthesia [Not Recovered/Not Resolved]
  - Aggression [Unknown]
  - Vomiting [Unknown]

NARRATIVE: CASE EVENT DATE: 201707
